FAERS Safety Report 13252620 (Version 1)
Quarter: 2017Q1

REPORT INFORMATION
  Report Type: Report from Study
  Country: US (occurrence: US)
  Receive Date: 20170220
  Receipt Date: 20170220
  Transmission Date: 20170428
  Serious: Yes (Life-Threatening)
  Sender: FDA-Public Use
  Company Number: US-009507513-1702USA008141

PATIENT

DRUGS (3)
  1. POMALIDOMIDE [Concomitant]
     Active Substance: POMALIDOMIDE
     Dosage: POMALIDOMIDE (3 OR 4 MG) ON DL THROUGH 21
  2. DEXAMETHASONE. [Suspect]
     Active Substance: DEXAMETHASONE
     Indication: PLASMA CELL MYELOMA
     Dosage: 5 OR 10 MG ON DAY 1, 2, 4, 5, 8, 9, 11, 12, 15, 16, 22, 23 OF EVERY 28-D CYCLE
     Route: 048
  3. MARIZOMIB [Concomitant]
     Active Substance: MARIZOMIB
     Dosage: 0.3 TO 0.5 MG/M2 WAS ADMINISTERED ON DAYS (D) 1, 4, 8, 11
     Route: 042

REACTIONS (1)
  - Viral infection [Unknown]
